FAERS Safety Report 5499797-1 (Version None)
Quarter: 2007Q4

REPORT INFORMATION
  Report Type: 
  Country: None (occurrence: None)
  Receive Date: 20071026
  Receipt Date: 20071015
  Transmission Date: 20080405
  Serious: Yes (Death, Life-Threatening, Other)
  Sender: FDA-Public Use
  Company Number: JP-PFIZER INC-2007072131

PATIENT
  Sex: Male
  Weight: 52.5 kg

DRUGS (19)
  1. VFEND [Suspect]
     Indication: PNEUMONIA BACTERIAL
     Route: 042
     Dates: start: 20060710, end: 20060715
  2. VFEND [Suspect]
     Indication: CARDIAC FAILURE CONGESTIVE
  3. BIAPENEM [Concomitant]
     Route: 042
     Dates: start: 20060710, end: 20060710
  4. ORGARAN [Concomitant]
     Route: 042
  5. GRAN [Concomitant]
     Route: 042
  6. MINOCYCLINE HCL [Concomitant]
     Route: 042
     Dates: start: 20060710, end: 20060710
  7. BENAMBAX [Concomitant]
     Route: 042
     Dates: start: 20060711, end: 20060713
  8. TARGOCID [Concomitant]
     Route: 042
  9. GAMIMUNE N 5% [Concomitant]
     Route: 042
     Dates: start: 20060711, end: 20060712
  10. MAGNESIUM OXIDE [Concomitant]
     Route: 048
  11. BIOFERMIN R [Concomitant]
     Route: 048
  12. ZOVIRAX [Concomitant]
     Route: 048
  13. POLYMYXIN B SULFATE [Concomitant]
     Route: 048
  14. URSO 250 [Concomitant]
     Route: 048
  15. ALLOID [Concomitant]
     Route: 048
  16. POLAPREZINC [Concomitant]
     Route: 048
  17. NOVOLIN R [Concomitant]
     Route: 042
  18. MICAFUNGIN [Concomitant]
     Route: 042
     Dates: start: 20060624, end: 20060709
  19. DIFLUCAN [Concomitant]
     Route: 048
     Dates: start: 20060621, end: 20060716

REACTIONS (4)
  - DEATH [None]
  - HYPERBILIRUBINAEMIA [None]
  - RENAL FAILURE ACUTE [None]
  - RESPIRATORY FAILURE [None]
